FAERS Safety Report 9178500 (Version 1)
Quarter: 2012Q4

REPORT INFORMATION
  Report Type: 
  Country: MX (occurrence: MX)
  Receive Date: 20121029
  Receipt Date: 20121029
  Transmission Date: 20130627
  Serious: Yes (Hospitalization, Other)
  Sender: FDA-Public Use
  Company Number: MX-SANOFI-AVENTIS-2012SA077592

PATIENT
  Age: 51 Year
  Sex: Female
  Weight: 69 kg

DRUGS (9)
  1. LANTUS [Suspect]
     Indication: TYPE 2 DIABETES MELLITUS
     Route: 058
     Dates: start: 201203, end: 201208
  2. LANTUS [Suspect]
     Indication: TYPE 2 DIABETES MELLITUS
     Dosage: in the morning
     Route: 058
     Dates: start: 201208
  3. INSULIN HUMAN [Suspect]
     Indication: TYPE 2 DIABETES MELLITUS
     Route: 058
     Dates: start: 201208
  4. SITAGLIPTIN PHOSPHATE [Suspect]
     Indication: TYPE 2 DIABETES MELLITUS
     Route: 048
     Dates: start: 2011
  5. LOSARTAN [Concomitant]
     Indication: HYPERTENSION ARTERIAL
     Route: 048
     Dates: start: 1992
  6. ADALAT OROS [Concomitant]
     Indication: HYPERTENSION ARTERIAL
     Dosage: strength: 30mg
     Route: 048
     Dates: start: 2011
  7. BEZAFIBRATE [Concomitant]
     Indication: HYPERTRIGLYCERIDEMIA
     Route: 048
     Dates: start: 2002, end: 201208
  8. SIMVASTATIN [Concomitant]
     Indication: HYPERTRIGLYCERIDEMIA
     Dosage: strength: 10mg
     Route: 048
     Dates: start: 2011
  9. THIOCTIC ACID [Concomitant]
     Indication: NEUROPATHY NOS
     Route: 048
     Dates: start: 2009

REACTIONS (6)
  - Hypertriglyceridaemia [Not Recovered/Not Resolved]
  - Hypertriglyceridaemia [Not Recovered/Not Resolved]
  - Hyperglycaemia [Recovered/Resolved]
  - Hyperglycaemia [Recovered/Resolved]
  - Effusion [Not Recovered/Not Resolved]
  - Drug administration error [Unknown]
